FAERS Safety Report 24550935 (Version 1)
Quarter: 2024Q4

REPORT INFORMATION
  Report Type: Spontaneous
  Country: US (occurrence: None)
  Receive Date: 20241025
  Receipt Date: 20241025
  Transmission Date: 20250115
  Serious: Yes (Other)
  Sender: Public
  Company Number: None

PATIENT
  Age: 60 Year
  Sex: Male
  Weight: 115.7 kg

DRUGS (1)
  1. ORITAVANCIN [Suspect]
     Active Substance: ORITAVANCIN
     Indication: Enterococcal bacteraemia
     Dates: start: 20241024, end: 20241024

REACTIONS (5)
  - Infusion related reaction [None]
  - Dyspnoea [None]
  - Headache [None]
  - Nausea [None]
  - Vomiting [None]

NARRATIVE: CASE EVENT DATE: 20241024
